FAERS Safety Report 8199623-6 (Version None)
Quarter: 2012Q1

REPORT INFORMATION
  Report Type: 
  Country: None (occurrence: None)
  Receive Date: 20120310
  Receipt Date: 20120302
  Transmission Date: 20120608
  Serious: Yes (Other)
  Sender: FDA-Public Use
  Company Number: JP-VERTEX PHARMACEUTICALS INC.-AE-2012-002368

PATIENT
  Age: 45 Year
  Sex: Male

DRUGS (7)
  1. PEGINTERFERON [Concomitant]
     Indication: HEPATITIS C
     Dates: start: 20120120, end: 20120202
  2. PEGINTERFERON [Concomitant]
     Dates: start: 20120202, end: 20120209
  3. REBETOL [Concomitant]
     Route: 048
     Dates: start: 20120209
  4. PEGINTERFERON [Concomitant]
     Dates: start: 20120217
  5. PEGINTERFERON [Concomitant]
     Dates: start: 20120209, end: 20120217
  6. TELAVIC (TELAPREVIR) [Suspect]
     Indication: HEPATITIS C
     Route: 048
     Dates: start: 20120120
  7. REBETOL [Concomitant]
     Indication: HEPATITIS C
     Route: 048
     Dates: start: 20120120, end: 20120209

REACTIONS (4)
  - NEUTROPHIL COUNT DECREASED [None]
  - DECREASED APPETITE [None]
  - TOXIC SKIN ERUPTION [None]
  - PYREXIA [None]
